FAERS Safety Report 10881399 (Version 2)
Quarter: 2015Q1

REPORT INFORMATION
  Report Type: Report from Study
  Country: US (occurrence: US)
  Receive Date: 20150303
  Receipt Date: 20150303
  Transmission Date: 20150721
  Serious: Yes (Other)
  Sender: FDA-Public Use
  Company Number: US-JNJFOC-20150220189

PATIENT
  Age: 57 Year
  Sex: Female
  Weight: 81.65 kg

DRUGS (16)
  1. REMICADE [Suspect]
     Active Substance: INFLIXIMAB
     Indication: RHEUMATOID ARTHRITIS
     Route: 042
     Dates: start: 2014
  2. WELLBUTRIN [Concomitant]
     Active Substance: BUPROPION HYDROCHLORIDE
     Route: 048
  3. ZOFRAN [Concomitant]
     Active Substance: ONDANSETRON HYDROCHLORIDE
     Indication: VOMITING
     Dosage: 1 UNIT
     Route: 048
  4. VITAMIN B12 [Concomitant]
     Active Substance: CYANOCOBALAMIN
     Dosage: EVERY OTHER WEEK
     Route: 050
  5. METHOTREXATE [Concomitant]
     Active Substance: METHOTREXATE
     Indication: RHEUMATOID ARTHRITIS
     Route: 048
  6. CYMBALTA [Concomitant]
     Active Substance: DULOXETINE HYDROCHLORIDE
     Route: 048
  7. HCTZ/VALSARTAN [Concomitant]
     Dosage: 320/25 MG
     Route: 048
  8. FOLIC ACID. [Concomitant]
     Active Substance: FOLIC ACID
     Route: 048
  9. METOPROLOL [Concomitant]
     Active Substance: METOPROLOL
     Indication: BLOOD PRESSURE
     Route: 048
  10. KLONOPIN [Concomitant]
     Active Substance: CLONAZEPAM
     Route: 048
  11. LASIX [Concomitant]
     Active Substance: FUROSEMIDE
     Indication: FLUID RETENTION
     Route: 048
  12. DEXILANT [Concomitant]
     Active Substance: DEXLANSOPRAZOLE
     Indication: ULCER
     Route: 048
  13. PERCOCET [Concomitant]
     Active Substance: ACETAMINOPHEN\OXYCODONE HYDROCHLORIDE
     Dosage: 10/325 MG/
     Route: 048
  14. ABILIFY [Concomitant]
     Active Substance: ARIPIPRAZOLE
     Route: 048
  15. PLAQUENIL [Concomitant]
     Active Substance: HYDROXYCHLOROQUINE SULFATE
     Route: 048
  16. POTASSIUM CHLORIDE. [Concomitant]
     Active Substance: POTASSIUM CHLORIDE
     Route: 048

REACTIONS (3)
  - Systemic lupus erythematosus [Not Recovered/Not Resolved]
  - Fluid retention [Recovering/Resolving]
  - Activated partial thromboplastin time abnormal [Not Recovered/Not Resolved]

NARRATIVE: CASE EVENT DATE: 2015
